FAERS Safety Report 22897864 (Version 2)
Quarter: 2023Q4

REPORT INFORMATION
  Report Type: Spontaneous
  Country: ES (occurrence: ES)
  Receive Date: 20230903
  Receipt Date: 20231220
  Transmission Date: 20240110
  Serious: Yes (Hospitalization)
  Sender: FDA-Public Use
  Company Number: ES-JNJFOC-20201152690

PATIENT
  Age: 66 Year
  Sex: Male
  Weight: 108 kg

DRUGS (12)
  1. DEXAMETHASONE [Suspect]
     Active Substance: DEXAMETHASONE
     Indication: Plasma cell myeloma
     Dosage: 40 MG
     Route: 048
     Dates: start: 20190816, end: 20191121
  2. DARATUMUMAB [Suspect]
     Active Substance: DARATUMUMAB
     Indication: Plasma cell myeloma
     Dosage: 1800 MG (MOST RECEIVED ON 12 NOV 2019)
     Route: 058
     Dates: start: 20190816, end: 20191112
  3. LENALIDOMIDE [Suspect]
     Active Substance: LENALIDOMIDE
     Indication: Plasma cell myeloma
     Dosage: 25 MG (MOST RECENT DOSE RECEIVED ON 21 NOV 2019)
     Route: 048
     Dates: start: 20190816, end: 20191121
  4. VELCADE [Suspect]
     Active Substance: BORTEZOMIB
     Indication: Plasma cell myeloma
     Dosage: 2.89 MG (MOST RECENT ON 19 NOV 2019)
     Route: 058
     Dates: start: 20190816, end: 20191119
  5. VELCADE [Suspect]
     Active Substance: BORTEZOMIB
     Dosage: UNK
     Route: 058
     Dates: start: 20200505
  6. VELCADE [Suspect]
     Active Substance: BORTEZOMIB
     Dosage: 2.89 MG
     Route: 058
     Dates: start: 20191119
  7. ACYCLOVIR [Concomitant]
     Active Substance: ACYCLOVIR
     Indication: Pain prophylaxis
     Dosage: 800 MG, QD
     Route: 048
     Dates: start: 20190816
  8. ACYCLOVIR [Concomitant]
     Active Substance: ACYCLOVIR
     Indication: Antiviral prophylaxis
     Dosage: UNK
     Route: 065
  9. ASPIRIN [Concomitant]
     Active Substance: ASPIRIN
     Indication: Pain prophylaxis
     Dosage: 100 MG, PRN (AS NECESSARY)
     Route: 048
     Dates: start: 20190816
  10. DIAMICRON [Concomitant]
     Indication: Diabetes mellitus
     Dosage: 60 MG, QD
     Route: 048
  11. METFORMIN [Concomitant]
     Active Substance: METFORMIN HYDROCHLORIDE
     Indication: Diabetes mellitus
     Dosage: 850 MG, QD
     Route: 048
  12. ONDANSETRON [Concomitant]
     Active Substance: ONDANSETRON
     Indication: Prophylaxis of nausea and vomiting
     Dosage: 8 MG, PRN (AS NECESSARY)
     Route: 048

REACTIONS (1)
  - Intestinal obstruction [Recovered/Resolved]

NARRATIVE: CASE EVENT DATE: 20191122
